FAERS Safety Report 5009173-3 (Version None)
Quarter: 2006Q2

REPORT INFORMATION
  Report Type: 
  Country: None (occurrence: None)
  Receive Date: 20060519
  Receipt Date: 20060509
  Transmission Date: 20061013
  Serious: Yes (Hospitalization, Other)
  Sender: FDA-Public Use
  Company Number: 2006AL001166

PATIENT
  Age: 70 Year
  Sex: Female

DRUGS (8)
  1. OXYCODONE HCL [Suspect]
     Indication: PAIN
     Dosage: 40 MG;BID;PO
     Route: 048
  2. DICLOFENAC SODIUM [Suspect]
     Dosage: 50 MG;BID;PO
     Route: 048
  3. DILTIAZEM HYDROCHLORIDE [Suspect]
     Dosage: 240 MG;QD;PO
     Route: 048
  4. FLUVOXAMINE MALEATE [Concomitant]
  5. DOXEPIN [Concomitant]
  6. RALOXIFENE [Concomitant]
  7. CALCIUM CARBONATE [Concomitant]
  8. SIMVASTATIN [Concomitant]

REACTIONS (8)
  - AGITATION [None]
  - ATRIAL FIBRILLATION [None]
  - BLOOD CREATINE PHOSPHOKINASE INCREASED [None]
  - BLOOD PRESSURE DIASTOLIC DECREASED [None]
  - MYDRIASIS [None]
  - NAUSEA [None]
  - NEUROLOGICAL SYMPTOM [None]
  - SEROTONIN SYNDROME [None]
